FAERS Safety Report 12973490 (Version 1)
Quarter: 2016Q4

REPORT INFORMATION
  Report Type: Spontaneous
  Country: FR (occurrence: FR)
  Receive Date: 20161124
  Receipt Date: 20161124
  Transmission Date: 20170207
  Serious: Yes (Hospitalization)
  Sender: FDA-Public Use
  Company Number: FR-ASTRAZENECA-2016SF22969

PATIENT
  Age: 10032 Day
  Sex: Female

DRUGS (4)
  1. NAPROXENE [Suspect]
     Active Substance: NAPROXEN
     Indication: CERVICAL RADICULOPATHY
     Route: 065
  2. METRONIDAZOLE. [Suspect]
     Active Substance: METRONIDAZOLE
     Indication: VAGINAL INFECTION
     Route: 065
  3. MOPRAL [Suspect]
     Active Substance: OMEPRAZOLE SODIUM
     Route: 048
  4. PROVAMES [Suspect]
     Active Substance: ESTRADIOL
     Indication: IN VITRO FERTILISATION
     Route: 065

REACTIONS (5)
  - Loss of consciousness [Unknown]
  - Urticaria [Recovered/Resolved]
  - Malaise [Unknown]
  - Asthenia [Unknown]
  - Pyrexia [Unknown]

NARRATIVE: CASE EVENT DATE: 20160218
